FAERS Safety Report 13260677 (Version 1)
Quarter: 2017Q1

REPORT INFORMATION
  Report Type: Spontaneous
  Country: US (occurrence: US)
  Receive Date: 20170222
  Receipt Date: 20170222
  Transmission Date: 20170428
  Serious: Yes (Other)
  Sender: FDA-Public Use
  Company Number: US-TEVA-740856USA

PATIENT
  Age: 35 Year
  Sex: Female

DRUGS (1)
  1. COPAXONE [Suspect]
     Active Substance: GLATIRAMER ACETATE
     Route: 065

REACTIONS (6)
  - Heart rate decreased [Unknown]
  - Loss of consciousness [Unknown]
  - Dizziness [Unknown]
  - Palpitations [Unknown]
  - Presyncope [Unknown]
  - Hyperhidrosis [Unknown]
